FAERS Safety Report 8823884 (Version 3)
Quarter: 2013Q1

REPORT INFORMATION
  Report Type: Spontaneous
  Country: US (occurrence: US)
  Receive Date: 20121003
  Receipt Date: 20130121
  Transmission Date: 20140127
  Serious: No
  Sender: FDA-Public Use
  Company Number: US-009507513-1210USA001521

PATIENT
  Sex: Female
  Weight: 70.3 kg

DRUGS (2)
  1. IMPLANON [Suspect]
     Indication: CONTRACEPTION
     Dosage: SINGLE ROD
     Dates: start: 20101228
  2. LEVOTHYROXINE SODIUM [Concomitant]

REACTIONS (6)
  - Vaginal discharge [Unknown]
  - Menstruation irregular [Recovered/Resolved]
  - Implant site pain [Unknown]
  - Mood swings [Unknown]
  - Weight increased [Unknown]
  - Medical device complication [Unknown]
